FAERS Safety Report 9748482 (Version 1)
Quarter: 2013Q4

REPORT INFORMATION
  Report Type: Spontaneous
  Country: US (occurrence: US)
  Receive Date: 20131212
  Receipt Date: 20131212
  Transmission Date: 20140711
  Serious: No
  Sender: FDA-Public Use
  Company Number: US-BAYER-2013-146719

PATIENT
  Age: 85 Year
  Sex: Female
  Weight: 69.39 kg

DRUGS (2)
  1. ALEVE TABLET [Suspect]
     Indication: SCIATICA
     Dosage: UNK, BID
     Route: 048
     Dates: start: 20131031, end: 20131127
  2. BAYER ASPIRIN REGIMEN ADULT LOW STRENGTH [Concomitant]
     Dosage: UNK

REACTIONS (4)
  - Blood pressure increased [None]
  - Extra dose administered [None]
  - Off label use [None]
  - Incorrect drug administration duration [Recovered/Resolved]
